FAERS Safety Report 9645546 (Version 1)
Quarter: 2013Q4

REPORT INFORMATION
  Report Type: Spontaneous
  Country: US (occurrence: US)
  Receive Date: 20131025
  Receipt Date: 20131025
  Transmission Date: 20140711
  Serious: Yes (Hospitalization)
  Sender: FDA-Public Use
  Company Number: US-B.I. PHARMACEUTICALS,INC./RIDGEFIELD-2013-BI-33094BP

PATIENT
  Sex: Male
  Weight: 107 kg

DRUGS (7)
  1. PRADAXA [Suspect]
     Indication: ATRIAL FIBRILLATION
     Dosage: 300 MG
     Route: 048
     Dates: start: 2011
  2. RAPAFLO [Concomitant]
     Indication: BLADDER DYSFUNCTION
     Dosage: 8 MG
     Route: 048
  3. OCUVITE [Concomitant]
     Indication: GLAUCOMA
  4. LOSARTAN/POTASSIUM [Concomitant]
     Indication: HYPERTENSION
     Dosage: 100 MG
     Route: 048
  5. SIMVASTATIN [Concomitant]
     Indication: BLOOD CHOLESTEROL INCREASED
     Dosage: 10 MG
     Route: 048
  6. MUTALQ [Concomitant]
     Indication: HEART RATE INCREASED
     Dosage: 400 MG
     Route: 048
  7. PRAZNISOLO [Concomitant]
     Indication: GLAUCOMA

REACTIONS (4)
  - Hypertension [Not Recovered/Not Resolved]
  - Dizziness [Not Recovered/Not Resolved]
  - Dizziness [Not Recovered/Not Resolved]
  - Gait disturbance [Not Recovered/Not Resolved]
